FAERS Safety Report 9511649 (Version 1)
Quarter: 2013Q3

REPORT INFORMATION
  Report Type: Spontaneous
  Country: IE (occurrence: IE)
  Receive Date: 20130910
  Receipt Date: 20130910
  Transmission Date: 20140515
  Serious: Yes (Other)
  Sender: FDA-Public Use
  Company Number: IE-ASTELLAS-2013EU007541

PATIENT
  Sex: Female

DRUGS (1)
  1. VESITIRIM [Suspect]
     Indication: LOWER URINARY TRACT SYMPTOMS
     Dosage: 5 MG, UNKNOWN/D
     Route: 048
     Dates: end: 201212

REACTIONS (1)
  - Dementia [Recovering/Resolving]
